FAERS Safety Report 18896972 (Version 1)
Quarter: 2021Q1

REPORT INFORMATION
  Report Type: Spontaneous
  Country: US (occurrence: US)
  Receive Date: 20210215
  Receipt Date: 20210215
  Transmission Date: 20210420
  Serious: Yes (Other)
  Sender: FDA-Public Use
  Company Number: US-GLAXOSMITHKLINE-US2021GSK041940

PATIENT
  Sex: Female

DRUGS (2)
  1. RANITIDINE. [Suspect]
     Active Substance: RANITIDINE
     Dosage: 25 MG, QD
     Route: 065
     Dates: start: 200701, end: 202004
  2. RANITIDINE. [Suspect]
     Active Substance: RANITIDINE
     Dosage: 25 MG, QD
     Route: 065
     Dates: start: 200701, end: 202004

REACTIONS (1)
  - Uterine cancer [Unknown]
